FAERS Safety Report 19177087 (Version 2)
Quarter: 2021Q4

REPORT INFORMATION
  Report Type: Report from Study
  Country: AR (occurrence: AR)
  Receive Date: 20210424
  Receipt Date: 20211118
  Transmission Date: 20220303
  Serious: Yes (Other)
  Sender: FDA-Public Use
  Company Number: AR-NOVARTISPH-NVSC2020AR152194

PATIENT
  Age: 48 Year
  Sex: Female

DRUGS (3)
  1. SANDOSTATIN LAR DEPOT [Suspect]
     Active Substance: OCTREOTIDE ACETATE
     Indication: Acromegaly
     Dosage: 30 MG, EVERY 28 DAYS
     Route: 030
     Dates: start: 20160401
  2. SANDOSTATIN LAR DEPOT [Suspect]
     Active Substance: OCTREOTIDE ACETATE
  3. SANDOSTATIN LAR DEPOT [Suspect]
     Active Substance: OCTREOTIDE ACETATE

REACTIONS (14)
  - Breast abscess [Unknown]
  - Malaise [Unknown]
  - Nervousness [Recovering/Resolving]
  - Agitation [Recovering/Resolving]
  - Sleep apnoea syndrome [Recovering/Resolving]
  - Bone pain [Unknown]
  - Pain in extremity [Unknown]
  - Muscle spasms [Unknown]
  - Pain [Unknown]
  - Galactorrhoea [Unknown]
  - Myalgia [Unknown]
  - Palpitations [Unknown]
  - Dyspnoea [Recovering/Resolving]
  - Heart rate increased [Unknown]

NARRATIVE: CASE EVENT DATE: 20200801
